FAERS Safety Report 9691424 (Version 1)
Quarter: 2013Q4

REPORT INFORMATION
  Report Type: Spontaneous
  Country: US (occurrence: US)
  Receive Date: 20131115
  Receipt Date: 20131115
  Transmission Date: 20140711
  Serious: Yes (Death, Other)
  Sender: FDA-Public Use
  Company Number: US-MALLINCKRODT-T201304841

PATIENT
  Age: 51 Year
  Sex: Female

DRUGS (1)
  1. GABLOFEN [Suspect]
     Indication: MUSCLE SPASTICITY
     Dosage: 970.6 MCG PER DAY
     Route: 037

REACTIONS (4)
  - Brain neoplasm [Fatal]
  - Lymphoma [Unknown]
  - Pyrexia [Unknown]
  - Dyspnoea [Unknown]
